FAERS Safety Report 6853926-3 (Version None)
Quarter: 2010Q3

REPORT INFORMATION
  Report Type: 
  Country: None (occurrence: None)
  Receive Date: 20100717
  Receipt Date: 20080126
  Transmission Date: 20110219
  Serious: No
  Sender: FDA-Public Use
  Company Number: US-PFIZER INC-2007105468

PATIENT
  Sex: Female
  Weight: 73.6 kg

DRUGS (5)
  1. CHANTIX [Suspect]
     Indication: SMOKING CESSATION THERAPY
     Route: 048
     Dates: start: 20071010
  2. ATENOLOL [Concomitant]
  3. PRINZIDE [Concomitant]
  4. PRILOSEC [Concomitant]
  5. LIPITOR [Concomitant]

REACTIONS (3)
  - GASTROENTERITIS VIRAL [None]
  - GASTROOESOPHAGEAL REFLUX DISEASE [None]
  - NAUSEA [None]
